FAERS Safety Report 4327887-5 (Version None)
Quarter: 2004Q1

REPORT INFORMATION
  Report Type: 
  Country: None (occurrence: None)
  Receive Date: 20040325
  Receipt Date: 20040312
  Transmission Date: 20041129
  Serious: Yes (Disabling)
  Sender: FDA-Public Use
  Company Number: GB-JNJFOC-20040302112

PATIENT
  Age: 13 Year
  Sex: Male
  Weight: 78.5 kg

DRUGS (3)
  1. RISPERDAL [Suspect]
     Indication: AGGRESSION
     Dosage: IN 1 DAY, ORAL
     Route: 048
     Dates: start: 20040225, end: 20040318
  2. RISPERDAL [Suspect]
     Indication: ASPERGER'S DISORDER
     Dosage: IN 1 DAY, ORAL
     Route: 048
     Dates: start: 20040225, end: 20040318
  3. FUOXETINE (FLUOXETINE) [Concomitant]

REACTIONS (2)
  - POLLAKIURIA [None]
  - URINARY INCONTINENCE [None]
